FAERS Safety Report 9784202 (Version 1)
Quarter: 2013Q4

REPORT INFORMATION
  Report Type: Spontaneous
  Country: AU (occurrence: AU)
  Receive Date: 20131226
  Receipt Date: 20131226
  Transmission Date: 20140711
  Serious: Yes (Other)
  Sender: FDA-Public Use
  Company Number: AU-CELGENEUS-008-50794-13122834

PATIENT
  Age: 85 Year
  Sex: Female
  Weight: 63 kg

DRUGS (1)
  1. VIDAZA [Suspect]
     Indication: PRODUCT USED FOR UNKNOWN INDICATION
     Route: 065

REACTIONS (2)
  - Functional gastrointestinal disorder [Not Recovered/Not Resolved]
  - Neck pain [Not Recovered/Not Resolved]
